FAERS Safety Report 4570278-2 (Version None)
Quarter: 2005Q1

REPORT INFORMATION
  Report Type: 
  Country: None (occurrence: None)
  Receive Date: 20050127
  Receipt Date: 20050127
  Transmission Date: 20050727
  Serious: Yes (Life-Threatening, Hospitalization)
  Sender: FDA-Public Use
  Company Number: None

PATIENT
  Age: 56 Year
  Sex: Male
  Weight: 100.7 kg

DRUGS (9)
  1. GEMFIBROZIL [Suspect]
  2. DILTIAZEM SA 120 MG CAP [Suspect]
  3. SIMVASTATIN [Suspect]
  4. ASPIRIN [Concomitant]
  5. FOSINOPRIL [Concomitant]
  6. GLYBURIDE [Concomitant]
  7. METOPROLOL [Concomitant]
  8. CITALOPRAM [Concomitant]
  9. RISPERIDONE [Concomitant]

REACTIONS (1)
  - RHABDOMYOLYSIS [None]
